FAERS Safety Report 24306558 (Version 1)
Quarter: 2024Q3

REPORT INFORMATION
  Report Type: Spontaneous
  Country: IT (occurrence: IT)
  Receive Date: 20240911
  Receipt Date: 20240911
  Transmission Date: 20241017
  Serious: Yes (Death, Other)
  Sender: STRIDES
  Company Number: IT-STRIDES ARCOLAB LIMITED-2024SP011410

PATIENT
  Sex: Female

DRUGS (4)
  1. DIAZEPAM [Suspect]
     Active Substance: DIAZEPAM
     Indication: Insomnia
     Dosage: UNK
     Route: 065
  2. MELATONIN [Suspect]
     Active Substance: MELATONIN
     Indication: Insomnia
     Dosage: UNK
     Route: 065
  3. NIAPRAZINE [Suspect]
     Active Substance: NIAPRAZINE
     Indication: Insomnia
     Dosage: UNK
     Route: 065
  4. DEXMEDETOMIDINE [Suspect]
     Active Substance: DEXMEDETOMIDINE
     Indication: Insomnia
     Dosage: 3 MICROGRAM/KILOGRAM; INTRANASAL ROUTE
     Route: 050

REACTIONS (3)
  - Death [Fatal]
  - Treatment failure [Unknown]
  - Off label use [Unknown]
